FAERS Safety Report 5618668-0 (Version None)
Quarter: 2008Q1

REPORT INFORMATION
  Report Type: 
  Country: None (occurrence: None)
  Receive Date: 20080205
  Receipt Date: 20080205
  Transmission Date: 20080703
  Serious: Yes (Hospitalization)
  Sender: FDA-Public Use
  Company Number: None

PATIENT
  Age: 42 Year
  Sex: Male
  Weight: 70.3075 kg

DRUGS (1)
  1. MEFLOQUINE HCL [Suspect]
     Dosage: 1 TABLET ONCE A WEEK PO
     Route: 048
     Dates: start: 20071122, end: 20071202

REACTIONS (5)
  - ANXIETY [None]
  - INSOMNIA [None]
  - PALPITATIONS [None]
  - SINUS TACHYCARDIA [None]
  - TINNITUS [None]
